FAERS Safety Report 6060726-3 (Version None)
Quarter: 2009Q1

REPORT INFORMATION
  Report Type: 
  Country: None (occurrence: None)
  Receive Date: 20090130
  Receipt Date: 20090130
  Transmission Date: 20090719
  Serious: Yes (Hospitalization)
  Sender: FDA-Public Use
  Company Number: None

PATIENT
  Age: 68 Year
  Sex: Female
  Weight: 68.0396 kg

DRUGS (5)
  1. AZITHROMYCIN [Suspect]
     Indication: SINUSITIS
     Dosage: 2 TAB FIRST DAY THEN ONE DAILY FOR 9DAYS 10/21/08-2 (10/22/08-10/24/08 1 EACH DAY)
     Dates: start: 20081022, end: 20081024
  2. AZITHROMYCIN [Suspect]
     Indication: SINUSITIS
     Dosage: 2 TAB FIRST DAY THEN ONE DAILY FOR 9DAYS 10/21/08-2 (10/22/08-10/24/08 1 EACH DAY)
     Dates: start: 20081021
  3. METOPROLOL SUCCINATE [Concomitant]
  4. PANCREASE MT [Concomitant]
  5. LISINOPRIL [Concomitant]

REACTIONS (1)
  - PANCREATITIS [None]
